FAERS Safety Report 22014925 (Version 1)
Quarter: 2023Q1

REPORT INFORMATION
  Report Type: Spontaneous
  Country: PL (occurrence: PL)
  Receive Date: 20230221
  Receipt Date: 20230221
  Transmission Date: 20230418
  Serious: Yes (Hospitalization)
  Sender: FDA-Public Use
  Company Number: None

PATIENT
  Age: 62 Year
  Sex: Female
  Weight: 62 kg

DRUGS (1)
  1. OXALIPLATIN [Suspect]
     Active Substance: OXALIPLATIN
     Indication: Colon cancer
     Dosage: THE DRUG WAS ADMINISTERED BETWEEN 12:15 AND 12:45 P.M.

REACTIONS (4)
  - Chest discomfort [Unknown]
  - Cyanosis [Unknown]
  - Dyspnoea [Unknown]
  - Flushing [Unknown]
